FAERS Safety Report 15748991 (Version 2)
Quarter: 2019Q1

REPORT INFORMATION
  Report Type: Report from Study
  Country: US (occurrence: US)
  Receive Date: 20181221
  Receipt Date: 20190122
  Transmission Date: 20190417
  Serious: Yes (Hospitalization, Other)
  Sender: FDA-Public Use
  Company Number: US-GILEAD-2018-0381196

PATIENT
  Age: 73 Year
  Sex: Male
  Weight: 100.54 kg

DRUGS (29)
  1. AMBRISENTAN [Suspect]
     Active Substance: AMBRISENTAN
     Indication: PULMONARY HYPERTENSION
     Dosage: 10 MG, QD
     Route: 048
     Dates: start: 20170727
  2. GLIPIZIDE. [Concomitant]
     Active Substance: GLIPIZIDE
  3. INSULIN GLARGINE [Concomitant]
     Active Substance: INSULIN GLARGINE
  4. POLYETHYLENE GLYCOL [Concomitant]
     Active Substance: POLYETHYLENE GLYCOLS
  5. CETIRIZINE [Concomitant]
     Active Substance: CETIRIZINE HYDROCHLORIDE
  6. GARLIC [ALLIUM SATIVUM] [Concomitant]
     Active Substance: GARLIC
  7. METFORMIN HCL [Concomitant]
     Active Substance: METFORMIN HYDROCHLORIDE
  8. MULTIVITAMIN WITH MINERALS [Concomitant]
     Active Substance: MINERALS\VITAMINS
  9. ASPIRIN (E.C.) [Concomitant]
     Active Substance: ASPIRIN
  10. CARVEDILOL. [Concomitant]
     Active Substance: CARVEDILOL
  11. FISH OIL [Concomitant]
     Active Substance: FISH OIL
  12. KETOROLAC [Concomitant]
     Active Substance: KETOROLAC\KETOROLAC TROMETHAMINE
  13. POTASSIUM CHLORIDE. [Concomitant]
     Active Substance: POTASSIUM CHLORIDE
  14. DAPSONE. [Concomitant]
     Active Substance: DAPSONE
  15. HYDROCODONE [Concomitant]
     Active Substance: HYDROCODONE
  16. OFLOXACIN. [Concomitant]
     Active Substance: OFLOXACIN
  17. PREDNISOLONE ACETATE. [Concomitant]
     Active Substance: PREDNISOLONE ACETATE
  18. FUROSEMIDE. [Concomitant]
     Active Substance: FUROSEMIDE
  19. METOLAZONE. [Concomitant]
     Active Substance: METOLAZONE
  20. BUMETANIDE. [Concomitant]
     Active Substance: BUMETANIDE
  21. VITAMIN E-100 [Concomitant]
  22. AZITHROMYCIN ANHYDROUS. [Concomitant]
     Active Substance: AZITHROMYCIN ANHYDROUS
  23. FOSINOPRIL [Concomitant]
     Active Substance: FOSINOPRIL
  24. LISINOPRIL. [Concomitant]
     Active Substance: LISINOPRIL
  25. OMEPRAZOLE. [Concomitant]
     Active Substance: OMEPRAZOLE
  26. SILDENAFIL CITRATE. [Concomitant]
     Active Substance: SILDENAFIL CITRATE
  27. MULTIVIT [VITAMINS NOS] [Concomitant]
  28. ROYAL JELLY [Concomitant]
     Active Substance: ROYAL JELLY
  29. SODIUM CHLORIDE. [Concomitant]
     Active Substance: SODIUM CHLORIDE

REACTIONS (4)
  - Fluid retention [Unknown]
  - Dyspnoea [Unknown]
  - Abdominal distension [Unknown]
  - Cardiac failure acute [Recovered/Resolved]

NARRATIVE: CASE EVENT DATE: 20181116
